FAERS Safety Report 8554496-4 (Version None)
Quarter: 2012Q3

REPORT INFORMATION
  Report Type: 
  Country: None (occurrence: None)
  Receive Date: 20120726
  Receipt Date: 20120726
  Transmission Date: 20120928
  Serious: Yes (Death)
  Sender: FDA-Public Use
  Company Number: None

PATIENT
  Age: 72 Year
  Sex: Male
  Weight: 77 kg

DRUGS (1)
  1. ABIRATERONE 250MG NA [Suspect]
     Indication: PROSTATE CANCER METASTATIC
     Dosage: 1000MG DAILY PO
     Route: 048
     Dates: start: 20120314, end: 20120720

REACTIONS (2)
  - ACUTE HEPATIC FAILURE [None]
  - INTERNATIONAL NORMALISED RATIO INCREASED [None]
